FAERS Safety Report 12536673 (Version 2)
Quarter: 2016Q3

REPORT INFORMATION
  Report Type: Spontaneous
  Country: US (occurrence: US)
  Receive Date: 20160707
  Receipt Date: 20160725
  Transmission Date: 20161109
  Serious: Yes (Other)
  Sender: FDA-Public Use
  Company Number: US-PFIZER INC-2016327679

PATIENT
  Sex: Female

DRUGS (1)
  1. XANAX [Suspect]
     Active Substance: ALPRAZOLAM
     Dosage: 1 MG, UNK

REACTIONS (12)
  - Product colour issue [Not Recovered/Not Resolved]
  - Drug ineffective [Unknown]
  - Rash macular [Unknown]
  - Fatigue [Unknown]
  - Anxiety [Unknown]
  - Throat tightness [Unknown]
  - Feeling abnormal [Unknown]
  - Chest discomfort [Unknown]
  - Abdominal discomfort [Unknown]
  - Somnolence [Unknown]
  - Rash [Not Recovered/Not Resolved]
  - Urticaria [Unknown]
